FAERS Safety Report 7020295-8 (Version None)
Quarter: 2010Q3

REPORT INFORMATION
  Report Type: 
  Country: None (occurrence: None)
  Receive Date: 20100929
  Receipt Date: 20100916
  Transmission Date: 20110219
  Serious: Yes (Death)
  Sender: FDA-Public Use
  Company Number: JP-ELI_LILLY_AND_COMPANY-JP201009003936

PATIENT
  Age: 57 Year
  Sex: Male

DRUGS (7)
  1. ZYPREXA [Suspect]
     Indication: BIPOLAR DISORDER
     Dosage: 5 MG, DAILY (1/D)
     Route: 048
     Dates: start: 20100826, end: 20100903
  2. RISPERDAL [Concomitant]
     Indication: BIPOLAR DISORDER
     Dosage: 4 MG, DAILY (1/D)
     Route: 048
     Dates: start: 20100826, end: 20100903
  3. LIMAS [Concomitant]
     Indication: BIPOLAR DISORDER
     Dosage: 400 MG, DAILY (1/D)
     Route: 048
     Dates: end: 20100825
  4. LIMAS [Concomitant]
     Dosage: 800 MG, DAILY (1/D)
     Route: 048
     Dates: start: 20100826, end: 20100829
  5. LIMAS [Concomitant]
     Dosage: 1200 MG, UNK
     Route: 048
     Dates: start: 20100830, end: 20100903
  6. GOODMIN [Concomitant]
     Indication: BIPOLAR DISORDER
     Dosage: 0.5 MG, DAILY (1/D)
     Route: 048
     Dates: start: 20100426, end: 20100903
  7. ROHYPNOL [Concomitant]
     Indication: BIPOLAR DISORDER
     Dosage: 4 MG, DAILY (1/D)
     Route: 048
     Dates: start: 20100426, end: 20100903

REACTIONS (3)
  - CARDIAC FAILURE [None]
  - OFF LABEL USE [None]
  - SUDDEN DEATH [None]
